FAERS Safety Report 7016284-X (Version None)
Quarter: 2010Q3

REPORT INFORMATION
  Report Type: 
  Country: None (occurrence: None)
  Receive Date: 20100923
  Receipt Date: 20100914
  Transmission Date: 20110219
  Serious: Yes (Other)
  Sender: FDA-Public Use
  Company Number: 2010SP049284

PATIENT
  Sex: Male

DRUGS (6)
  1. NASONEX [Suspect]
     Indication: HYPERSENSITIVITY
     Dosage: 2 DF;BID;NAS; 1 DF;BID;NAS; 2 DF;BID;NAS
     Route: 045
     Dates: start: 20090101
  2. NASONEX [Suspect]
     Indication: NASAL CONGESTION
     Dosage: 2 DF;BID;NAS; 1 DF;BID;NAS; 2 DF;BID;NAS
     Route: 045
     Dates: start: 20090101
  3. NASONEX [Suspect]
     Indication: HYPERSENSITIVITY
     Dosage: 2 DF;BID;NAS; 1 DF;BID;NAS; 2 DF;BID;NAS
     Route: 045
     Dates: start: 20100101
  4. NASONEX [Suspect]
     Indication: NASAL CONGESTION
     Dosage: 2 DF;BID;NAS; 1 DF;BID;NAS; 2 DF;BID;NAS
     Route: 045
     Dates: start: 20100101
  5. NASONEX [Suspect]
     Indication: HYPERSENSITIVITY
     Dosage: 2 DF;BID;NAS; 1 DF;BID;NAS; 2 DF;BID;NAS
     Route: 045
     Dates: start: 20100101
  6. NASONEX [Suspect]
     Indication: NASAL CONGESTION
     Dosage: 2 DF;BID;NAS; 1 DF;BID;NAS; 2 DF;BID;NAS
     Route: 045
     Dates: start: 20100101

REACTIONS (4)
  - CARDIAC DISORDER [None]
  - DIZZINESS [None]
  - DRUG EFFECT DECREASED [None]
  - HYPERTENSION [None]
